FAERS Safety Report 7745306-3 (Version None)
Quarter: 2011Q3

REPORT INFORMATION
  Report Type: 
  Country: None (occurrence: None)
  Receive Date: 20110819
  Receipt Date: 20110419
  Transmission Date: 20111222
  Serious: No
  Sender: FDA-Public Use
  Company Number: 031692

PATIENT
  Sex: Male
  Weight: 59 kg

DRUGS (3)
  1. LACOSAMIDE [Suspect]
     Indication: CONVULSION
     Dosage: (150 MG BID ORAL) ; (150 MG BID ORAL)
     Route: 048
     Dates: start: 20100101, end: 20100501
  2. LACOSAMIDE [Suspect]
     Indication: CONVULSION
     Dosage: (150 MG BID ORAL) ; (150 MG BID ORAL)
     Route: 048
     Dates: start: 20100501
  3. KEPPRA [Suspect]
     Indication: CONVULSION
     Dosage: (1000 MG BID ORAL)
     Route: 048
     Dates: start: 20090101

REACTIONS (2)
  - HEADACHE [None]
  - SOMNOLENCE [None]
